FAERS Safety Report 4988417-8 (Version None)
Quarter: 2006Q2

REPORT INFORMATION
  Report Type: 
  Country: None (occurrence: None)
  Receive Date: 20060426
  Receipt Date: 20060417
  Transmission Date: 20061013
  Serious: Yes (Other)
  Sender: FDA-Public Use
  Company Number: 2006052317

PATIENT
  Age: 5 Month
  Sex: Male
  Weight: 10.4327 kg

DRUGS (2)
  1. BENADRYL [Suspect]
     Indication: ECZEMA
     Dosage: 1/2 TEASPOON AS NEEDED, ORAL
     Route: 048
     Dates: start: 20051001
  2. CORTICOSTEROID NOS (CORTICOSTEROID NOS) [Concomitant]

REACTIONS (2)
  - AGITATION [None]
  - MIDDLE INSOMNIA [None]
